FAERS Safety Report 6914242-4 (Version None)
Quarter: 2010Q3

REPORT INFORMATION
  Report Type: 
  Country: None (occurrence: None)
  Receive Date: 20100809
  Receipt Date: 20100802
  Transmission Date: 20110219
  Serious: Yes (Other)
  Sender: FDA-Public Use
  Company Number: A0868958A

PATIENT
  Age: 64 Year
  Sex: Male

DRUGS (2)
  1. REQUIP [Suspect]
     Indication: RESTLESS LEGS SYNDROME
     Route: 048
  2. NO CONCURRENT MEDICATION [Concomitant]

REACTIONS (4)
  - ADVERSE DRUG REACTION [None]
  - HALLUCINATION [None]
  - NIGHTMARE [None]
  - PALPITATIONS [None]
